FAERS Safety Report 14919062 (Version 3)
Quarter: 2018Q3

REPORT INFORMATION
  Report Type: Report from Study
  Country: DE (occurrence: DE)
  Receive Date: 20180521
  Receipt Date: 20180828
  Transmission Date: 20181010
  Serious: Yes (Other)
  Sender: FDA-Public Use
  Company Number: DE-PFIZER INC-2018205861

PATIENT
  Age: 64 Year
  Sex: Male
  Weight: 101 kg

DRUGS (16)
  1. HYDROCHLORTHIAZID [Concomitant]
     Active Substance: HYDROCHLOROTHIAZIDE
     Indication: HYPERTENSION
     Dosage: 12.5 MG, 1X/DAY
     Route: 048
     Dates: start: 2013
  2. SIMVASTATIN. [Concomitant]
     Active Substance: SIMVASTATIN
     Indication: HYPERLIPIDAEMIA
     Dosage: 40 MG, 1X/DAY
     Route: 048
     Dates: start: 20141217, end: 20170209
  3. BLINDED ALBIGLUTIDE [Suspect]
     Active Substance: ALBIGLUTIDE
     Indication: TYPE 2 DIABETES MELLITUS
     Dosage: 1 DF, WEEKLY
     Route: 058
     Dates: start: 20160127, end: 20160217
  4. FENTANYL PLASTER [Concomitant]
     Indication: BACK PAIN
     Dosage: 0.83 UG/MIN, CO
     Route: 062
     Dates: start: 20141217
  5. IBUPROFEN. [Suspect]
     Active Substance: IBUPROFEN
     Indication: BACK PAIN
     Dosage: 600 MG, UNK
     Route: 048
     Dates: start: 201508, end: 20160303
  6. BISOPROLOL [Concomitant]
     Active Substance: BISOPROLOL
     Indication: HYPERTENSION
     Dosage: 5 MG, 1X/DAY
     Route: 048
     Dates: start: 2013, end: 20170209
  7. EMPAGLIFLOZIN [Concomitant]
     Active Substance: EMPAGLIFLOZIN
     Indication: TYPE 2 DIABETES MELLITUS
     Dosage: 10 MG, 1X/DAY
     Route: 048
     Dates: start: 20160303, end: 20170105
  8. MAGNESIUM [Concomitant]
     Active Substance: MAGNESIUM
     Indication: MUSCLE SPASMS
     Dosage: 300 MG, 1X/DAY
     Route: 048
     Dates: start: 20141217, end: 20170424
  9. BLINDED PLACEBO [Suspect]
     Active Substance: INVESTIGATIONAL PRODUCT
     Indication: TYPE 2 DIABETES MELLITUS
     Dosage: 30 MG, WEEKLY (1X/WEEK)
     Route: 058
     Dates: start: 20160127, end: 20160217
  10. RAMIPRIL. [Concomitant]
     Active Substance: RAMIPRIL
     Indication: HYPERTENSION
     Dosage: 10 MG, 1X/DAY
     Route: 048
     Dates: start: 2013, end: 20170329
  11. METFORMIN [Concomitant]
     Active Substance: METFORMIN HYDROCHLORIDE
     Indication: TYPE 2 DIABETES MELLITUS
     Dosage: 2000 MG, 1X/DAY
     Route: 048
     Dates: start: 200909, end: 20170104
  12. INSULIN LISPRO [Concomitant]
     Active Substance: INSULIN LISPRO
     Indication: TYPE 2 DIABETES MELLITUS
     Dosage: 33 IU, 3X/DAY
     Route: 058
     Dates: start: 2014, end: 20160511
  13. CITALOPRAM [Concomitant]
     Active Substance: CITALOPRAM HYDROBROMIDE
     Indication: DEPRESSION
     Dosage: 10 MG, 1X/DAY
     Route: 048
     Dates: start: 20141217
  14. INSULIN NORMAL [Concomitant]
     Indication: TYPE 2 DIABETES MELLITUS
     Dosage: 26 IU, 1X/DAY
     Route: 058
     Dates: start: 2017
  15. TAMSULOZIN [Concomitant]
     Indication: PROPHYLAXIS
     Dosage: 0.4 MG, 1X/DAY
     Route: 048
     Dates: start: 20160427
  16. NOVAMINSULFON [Suspect]
     Active Substance: METAMIZOLE
     Indication: BACK PAIN
     Dosage: 500 MG, UNK
     Route: 048
     Dates: start: 20141217

REACTIONS (2)
  - Gastritis erosive [Recovered/Resolved]
  - Melaena [Recovered/Resolved]

NARRATIVE: CASE EVENT DATE: 20161030
